FAERS Safety Report 6150128-3 (Version None)
Quarter: 2009Q2

REPORT INFORMATION
  Report Type: 
  Country: None (occurrence: None)
  Receive Date: 20090409
  Receipt Date: 20090403
  Transmission Date: 20091009
  Serious: Yes (Other)
  Sender: FDA-Public Use
  Company Number: CA-ASTRAZENECA-2009UW08415

PATIENT
  Sex: Female

DRUGS (1)
  1. LISINOPRIL [Suspect]
     Route: 048

REACTIONS (6)
  - ASTHENIA [None]
  - BEDRIDDEN [None]
  - DIZZINESS [None]
  - FEELING JITTERY [None]
  - NERVOUSNESS [None]
  - RHINORRHOEA [None]
